FAERS Safety Report 4591422-7 (Version None)
Quarter: 2005Q1

REPORT INFORMATION
  Report Type: 
  Country: None (occurrence: None)
  Receive Date: 20050225
  Receipt Date: 20050215
  Transmission Date: 20050727
  Serious: Yes (Other)
  Sender: FDA-Public Use
  Company Number: PHBS2005GR02527

PATIENT
  Age: 77 Year
  Sex: Female

DRUGS (1)
  1. MIACALCIN [Suspect]
     Indication: OSTEOPOROSIS
     Route: 045

REACTIONS (4)
  - BLEPHARITIS [None]
  - EYE PRURITUS [None]
  - EYELID DISORDER [None]
  - GLAUCOMA [None]
